FAERS Safety Report 9135763 (Version 3)
Quarter: 2013Q2

REPORT INFORMATION
  Report Type: Spontaneous
  Country: FR (occurrence: FR)
  Receive Date: 20130304
  Receipt Date: 20130415
  Transmission Date: 20140414
  Serious: Yes (Hospitalization, Other)
  Sender: FDA-Public Use
  Company Number: FR-PFIZER INC-2013070122

PATIENT
  Age: 10 Year
  Sex: Female
  Weight: 30 kg

DRUGS (6)
  1. DALACINE [Suspect]
     Indication: PLEURISY
     Dosage: 30 MG/KG, 1X/DAY
     Route: 042
     Dates: start: 20130115, end: 20130129
  2. DALACINE [Suspect]
     Indication: PNEUMONIA
  3. VANCOMYCINE [Suspect]
     Indication: PLEURISY
     Dosage: 100 MG/KG, 1X/DAY
     Route: 042
     Dates: start: 20130115, end: 20130129
  4. VANCOMYCINE [Suspect]
     Indication: PNEUMONIA
  5. CEFOTAXIME MYLAN [Suspect]
     Indication: PLEURISY
     Dosage: 200 MG/KG, 1X/DAY
     Route: 042
     Dates: start: 20130115, end: 20130129
  6. CEFOTAXIME MYLAN [Suspect]

REACTIONS (4)
  - Hepatocellular injury [Recovered/Resolved]
  - Pyrexia [Recovered/Resolved]
  - Neutropenia [Unknown]
  - Hyponatraemia [Unknown]
